FAERS Safety Report 11379923 (Version 1)
Quarter: 2015Q3

REPORT INFORMATION
  Report Type: Spontaneous
  Country: US (occurrence: US)
  Receive Date: 20150814
  Receipt Date: 20150814
  Transmission Date: 20151125
  Serious: No
  Sender: FDA-Public Use
  Company Number: US-BAYER-2015-400384

PATIENT
  Age: 77 Year
  Sex: Female
  Weight: 54.88 kg

DRUGS (3)
  1. WARFARIN [Concomitant]
     Active Substance: WARFARIN
  2. MIRALAX [Suspect]
     Active Substance: POLYETHYLENE GLYCOL 3350
     Indication: CONSTIPATION
     Dosage: 1 DF, QD
     Route: 048
     Dates: start: 201506
  3. ATENOLOL. [Concomitant]
     Active Substance: ATENOLOL
     Dosage: 0.5 DF, QD
     Route: 048

REACTIONS (3)
  - Dehydration [Recovered/Resolved]
  - Product use issue [Unknown]
  - Diarrhoea [Recovered/Resolved]

NARRATIVE: CASE EVENT DATE: 201506
